FAERS Safety Report 18632237 (Version 1)
Quarter: 2020Q4

REPORT INFORMATION
  Report Type: Spontaneous
  Country: SE (occurrence: SE)
  Receive Date: 20201218
  Receipt Date: 20201218
  Transmission Date: 20210114
  Serious: Yes (Hospitalization)
  Sender: FDA-Public Use
  Company Number: SE-TEVA-2020-SE-1859000

PATIENT
  Age: 77 Year
  Sex: Male

DRUGS (15)
  1. CRESTOR [Concomitant]
     Active Substance: ROSUVASTATIN CALCIUM
  2. ENALAPRIL [Concomitant]
     Active Substance: ENALAPRIL
  3. LEVETIRACETAM. [Suspect]
     Active Substance: LEVETIRACETAM
     Indication: PARTIAL SEIZURES
     Dosage: 2020-10-14 = DATE FOR DOSE INCREASE, 2000 MG
     Route: 048
     Dates: start: 20201014, end: 202011
  4. OMEPRAZOL [Concomitant]
     Active Substance: OMEPRAZOLE
  5. IMDUR [Concomitant]
     Active Substance: ISOSORBIDE MONONITRATE
  6. ELIQUIS [Concomitant]
     Active Substance: APIXABAN
  7. ALVEDON [Concomitant]
     Active Substance: ACETAMINOPHEN
     Dosage: IF NECESSARY
  8. STESOLID [Concomitant]
     Active Substance: DIAZEPAM
  9. VALPROAT [Concomitant]
     Active Substance: VALPROATE SODIUM
  10. ATENOLOL. [Concomitant]
     Active Substance: ATENOLOL
  11. GLYTRIN [Concomitant]
     Dosage: IF NECESSARY
  12. FURIX [Concomitant]
     Dosage: IF NECESSARY
  13. LASIX [Concomitant]
     Active Substance: FUROSEMIDE
  14. LAKTULOS [Concomitant]
  15. IMOVANE [Concomitant]
     Active Substance: ZOPICLONE
     Dosage: IF NECESSARY

REACTIONS (1)
  - Cognitive disorder [Unknown]

NARRATIVE: CASE EVENT DATE: 20201014
